FAERS Safety Report 9648360 (Version 1)
Quarter: 2013Q4

REPORT INFORMATION
  Report Type: Spontaneous
  Country: US (occurrence: US)
  Receive Date: 20131028
  Receipt Date: 20131028
  Transmission Date: 20140711
  Serious: No
  Sender: FDA-Public Use
  Company Number: US-ELI_LILLY_AND_COMPANY-US201310006190

PATIENT
  Age: 51 Year
  Sex: Male

DRUGS (1)
  1. CIALIS [Suspect]
     Indication: PRODUCT USED FOR UNKNOWN INDICATION
     Dosage: 5 MG, PRN
     Route: 065
     Dates: start: 2011

REACTIONS (11)
  - Tunnel vision [Recovered/Resolved]
  - Nervousness [Unknown]
  - Nausea [Unknown]
  - Confusional state [Unknown]
  - Pruritus [Unknown]
  - Dizziness [Unknown]
  - Gastric ulcer [Unknown]
  - Lip swelling [Recovered/Resolved]
  - Feeling hot [Unknown]
  - Inappropriate schedule of drug administration [Unknown]
  - Wrong technique in drug usage process [Unknown]
